FAERS Safety Report 17816398 (Version 1)
Quarter: 2020Q2

REPORT INFORMATION
  Report Type: Spontaneous
  Country: IT (occurrence: IT)
  Receive Date: 20200522
  Receipt Date: 20200522
  Transmission Date: 20200714
  Serious: Yes (Other)
  Sender: FDA-Public Use
  Company Number: IT-ALKEM LABORATORIES LIMITED-IT-ALKEM-2020-02001

PATIENT
  Age: 82 Year
  Sex: Male

DRUGS (1)
  1. ESOMEPRAZOLE MAGNESIUM. [Suspect]
     Active Substance: ESOMEPRAZOLE MAGNESIUM
     Indication: DUODENAL ULCER
     Dosage: 40 MILLIGRAM
     Route: 048

REACTIONS (1)
  - Dermatitis exfoliative [Recovered/Resolved]
